FAERS Safety Report 14032223 (Version 2)
Quarter: 2017Q4

REPORT INFORMATION
  Report Type: Spontaneous
  Country: GB (occurrence: GB)
  Receive Date: 20171002
  Receipt Date: 20171012
  Transmission Date: 20180321
  Serious: Yes (Other)
  Sender: FDA-Public Use
  Company Number: GB-PFIZER INC-2017416708

PATIENT
  Age: 37 Year
  Sex: Female
  Weight: 78 kg

DRUGS (3)
  1. DRISTAN DECONGESTANT WITH ANTIHISTAMINE [Concomitant]
     Dosage: UNK
  2. GENATOSAN MULTIVITAMINS [Concomitant]
     Dosage: UNK
  3. SERTRALINE HCL [Suspect]
     Active Substance: SERTRALINE HYDROCHLORIDE
     Indication: DEPRESSION SUICIDAL
     Dosage: 100 MG, 1X/DAY
     Route: 048
     Dates: start: 20150319, end: 2017

REACTIONS (7)
  - Breast discharge [Recovered/Resolved]
  - Depression [Not Recovered/Not Resolved]
  - Syncope [Not Recovered/Not Resolved]
  - Dizziness [Not Recovered/Not Resolved]
  - Urticaria [Not Recovered/Not Resolved]
  - Condition aggravated [Not Recovered/Not Resolved]
  - Sleep disorder [Not Recovered/Not Resolved]

NARRATIVE: CASE EVENT DATE: 20161101
